FAERS Safety Report 16384118 (Version 1)
Quarter: 2019Q2

REPORT INFORMATION
  Report Type: Spontaneous
  Country: JP (occurrence: JP)
  Receive Date: 20190603
  Receipt Date: 20190603
  Transmission Date: 20190711
  Serious: Yes (Hospitalization, Other)
  Sender: FDA-Public Use
  Company Number: JP-PFIZER INC-2019226921

PATIENT
  Age: 8 Decade
  Sex: Male

DRUGS (2)
  1. LYRICA [Suspect]
     Active Substance: PREGABALIN
     Dosage: 75 MG, 1X/DAY
     Route: 048
     Dates: start: 2013, end: 20190526
  2. KINEDAK [Suspect]
     Active Substance: EPALRESTAT
     Dosage: 100 MG, 2X/DAY
     Route: 048

REACTIONS (4)
  - Cerebral infarction [Unknown]
  - Muscular weakness [Unknown]
  - Product use issue [Unknown]
  - Off label use [Unknown]

NARRATIVE: CASE EVENT DATE: 2013
